FAERS Safety Report 8147011-0 (Version None)
Quarter: 2012Q1

REPORT INFORMATION
  Report Type: 
  Country: None (occurrence: None)
  Receive Date: 20120217
  Receipt Date: 20120210
  Transmission Date: 20120608
  Serious: Yes (Hospitalization, Other)
  Sender: FDA-Public Use
  Company Number: US-ASTRAZENECA-2010SE36882

PATIENT
  Age: 78 Year
  Sex: Female

DRUGS (1)
  1. NEXIUM [Suspect]
     Route: 048

REACTIONS (9)
  - RIB FRACTURE [None]
  - BACK PAIN [None]
  - MALAISE [None]
  - VOMITING [None]
  - DYSPHAGIA [None]
  - INFLUENZA [None]
  - PAIN [None]
  - ROAD TRAFFIC ACCIDENT [None]
  - DRUG DOSE OMISSION [None]
